FAERS Safety Report 9780798 (Version 1)
Quarter: 2013Q4

REPORT INFORMATION
  Report Type: Spontaneous
  Country: AU (occurrence: AU)
  Receive Date: 20131224
  Receipt Date: 20131224
  Transmission Date: 20140711
  Serious: Yes (Hospitalization, Other)
  Sender: FDA-Public Use
  Company Number: AU-ELI_LILLY_AND_COMPANY-AU201312006558

PATIENT
  Age: 43 Year
  Sex: Female

DRUGS (6)
  1. OLANZAPINE [Suspect]
     Indication: BIPOLAR DISORDER
     Dosage: 300 MG, OTHER
     Route: 030
  2. OLANZAPINE [Suspect]
     Dosage: 405 MG, OTHER
     Route: 030
  3. OLANZAPINE [Suspect]
     Indication: BIPOLAR DISORDER
     Dosage: 10 MG, QD
     Route: 048
  4. LITHIUM CARBONATE [Concomitant]
     Indication: BIPOLAR DISORDER
     Dosage: 450 MG, QD
     Route: 065
  5. SODIUM VALPROATE [Concomitant]
     Indication: BIPOLAR DISORDER
     Dosage: 3400 MG, QD
     Route: 065
  6. CLOZAPINE [Concomitant]
     Indication: BIPOLAR DISORDER
     Route: 065

REACTIONS (5)
  - Weight increased [Unknown]
  - Sleep apnoea syndrome [Unknown]
  - Diabetes mellitus [Unknown]
  - Mania [Unknown]
  - Prescribed overdose [Unknown]
